FAERS Safety Report 9657953 (Version 1)
Quarter: 2013Q4

REPORT INFORMATION
  Report Type: Spontaneous
  Country: JP (occurrence: None)
  Receive Date: 20131029
  Receipt Date: 20131029
  Transmission Date: 20140711
  Serious: Yes (Other)
  Sender: FDA-Public Use
  Company Number: VLA_02785_2013

PATIENT
  Age: 34 Year
  Sex: Female

DRUGS (1)
  1. METHERGINE [Suspect]
     Indication: UTERINE HAEMORRHAGE
     Dosage: (0.375 MG QD ORAL) (0.375MG QD ORAL)?2 WEEKS UNTIL NOT CONTINUING, (4 WEEKS 2 DAYS UNTIL NOT CONTINUING, (2 MONTHS UNTIL UNKNOWN)

REACTIONS (1)
  - Uterine haemorrhage [None]
